FAERS Safety Report 22175543 (Version 2)
Quarter: 2023Q2

REPORT INFORMATION
  Report Type: Spontaneous
  Country: CN (occurrence: CN)
  Receive Date: 20230405
  Receipt Date: 20230411
  Transmission Date: 20230721
  Serious: Yes (Hospitalization, Other)
  Sender: FDA-Public Use
  Company Number: CN-002147023-NVSC2023CN076323

PATIENT
  Age: 52 Year
  Sex: Male
  Weight: 65 kg

DRUGS (2)
  1. MEKINIST [Suspect]
     Active Substance: TRAMETINIB DIMETHYL SULFOXIDE
     Indication: Malignant melanoma
     Dosage: 2 MG, QD (30 TABLETS, ONE TABLET AT A TIME, TAKING ONE HOUR BEFORE MEALS, TAKING TWO HOURS AFTER MEA
     Route: 048
     Dates: start: 20221214
  2. TAFINLAR [Suspect]
     Active Substance: DABRAFENIB MESYLATE
     Indication: Malignant melanoma
     Dosage: 75 MG, BID (120 CAPSULES, TWO CAPSULES AT A TIME)
     Route: 048
     Dates: start: 20221214

REACTIONS (7)
  - Dermatitis bullous [Recovering/Resolving]
  - Blister [Unknown]
  - Insomnia [Unknown]
  - Depressive symptom [Unknown]
  - Ulcer [Unknown]
  - Rash [Unknown]
  - Pruritus [Unknown]

NARRATIVE: CASE EVENT DATE: 20230201
